FAERS Safety Report 14280336 (Version 1)
Quarter: 2017Q4

REPORT INFORMATION
  Report Type: Spontaneous
  Country: US (occurrence: US)
  Receive Date: 20171212
  Receipt Date: 20171212
  Transmission Date: 20180321
  Serious: Yes (Other)
  Sender: FDA-Public Use
  Company Number: None

PATIENT
  Age: 48 Year
  Sex: Female
  Weight: 76.5 kg

DRUGS (6)
  1. ISONIAZID (INH) [Suspect]
     Active Substance: ISONIAZID
     Indication: TUBERCULOSIS
     Dosage: ?          QUANTITY:6 TABLET(S);OTHER FREQUENCY:WEEKLY;?
     Route: 048
  2. RIFAPENTINE (RPT) [Suspect]
     Active Substance: RIFAPENTINE
     Indication: LATENT TUBERCULOSIS
     Dosage: ?          QUANTITY:9 TABLET(S);?
     Route: 048
  3. ELAVIL [Concomitant]
     Active Substance: AMITRIPTYLINE HYDROCHLORIDE
  4. CELEXA [Concomitant]
     Active Substance: CITALOPRAM HYDROBROMIDE
  5. ISONIAZID (INH) [Suspect]
     Active Substance: ISONIAZID
     Indication: LATENT TUBERCULOSIS
     Dosage: ?          QUANTITY:6 TABLET(S);OTHER FREQUENCY:WEEKLY;?
     Route: 048
  6. FLAX SEED 3000 [Concomitant]

REACTIONS (9)
  - Malaise [None]
  - Impaired work ability [None]
  - Pyrexia [None]
  - Dizziness [None]
  - Chills [None]
  - Vomiting [None]
  - Ocular hyperaemia [None]
  - Nausea [None]
  - Influenza [None]

NARRATIVE: CASE EVENT DATE: 20170307
